FAERS Safety Report 8908268 (Version 3)
Quarter: 2013Q1

REPORT INFORMATION
  Report Type: Spontaneous
  Country: US (occurrence: US)
  Receive Date: 20121114
  Receipt Date: 20130327
  Transmission Date: 20140127
  Serious: Yes (Other)
  Sender: FDA-Public Use
  Company Number: PHEH2012US022512

PATIENT
  Age: 43 Year
  Sex: Female
  Weight: 89.34 kg

DRUGS (3)
  1. GILENYA [Suspect]
     Indication: MULTIPLE SCLEROSIS
     Dosage: 0.5 MG, QD
     Route: 048
     Dates: start: 20121003
  2. KEPPRA [Concomitant]
     Dosage: 250 MG, UNK
  3. VIT D [Concomitant]
     Dosage: 50000 U, UNK

REACTIONS (4)
  - Complex partial seizures [Recovered/Resolved]
  - Loss of consciousness [Unknown]
  - Dyskinesia [Unknown]
  - Hypotonia [Unknown]
